FAERS Safety Report 13052307 (Version 1)
Quarter: 2016Q4

REPORT INFORMATION
  Report Type: Spontaneous
  Country: GB (occurrence: GB)
  Receive Date: 20161221
  Receipt Date: 20161221
  Transmission Date: 20170207
  Serious: Yes (Other)
  Sender: FDA-Public Use
  Company Number: GB-PFIZER INC-2016584282

PATIENT
  Sex: Female

DRUGS (2)
  1. METHOTREXATE SODIUM. [Suspect]
     Active Substance: METHOTREXATE SODIUM
     Indication: PLACENTA ACCRETA
     Dosage: 50 MG, PER 48 HOURS
     Route: 030
  2. FOLINIC ACID [Concomitant]
     Active Substance: LEUCOVORIN
     Indication: PLACENTA ACCRETA
     Dosage: 30 HOURS AFTER METHOTREXATE
     Route: 030

REACTIONS (2)
  - Amniotic cavity infection [Unknown]
  - Pyrexia [Unknown]
